FAERS Safety Report 4348184-8 (Version None)
Quarter: 2004Q1

REPORT INFORMATION
  Report Type: 
  Country: None (occurrence: None)
  Receive Date: 20040325
  Receipt Date: 20040211
  Transmission Date: 20041129
  Serious: No
  Sender: FDA-Public Use
  Company Number: USA040259160

PATIENT
  Age: 79 Year
  Sex: Female

DRUGS (4)
  1. FORTEO [Suspect]
     Indication: OSTEOPOROSIS
     Dates: start: 20040114
  2. CELEBREX [Concomitant]
  3. NEXIUM [Concomitant]
  4. NORVASC [Concomitant]

REACTIONS (1)
  - BREAST DISCOMFORT [None]
